FAERS Safety Report 24732220 (Version 1)
Quarter: 2024Q4

REPORT INFORMATION
  Report Type: Other
  Country: GB (occurrence: GB)
  Receive Date: 20241213
  Receipt Date: 20241213
  Transmission Date: 20250115
  Serious: No
  Sender: SIGA TECHNOLOGIES, INC.
  Company Number: GB-SIGA Technologies, Inc.-2167053

PATIENT
  Age: 35 Year
  Sex: Female

DRUGS (4)
  1. TPOXX [Suspect]
     Active Substance: TECOVIRIMAT
     Indication: Monkeypox
  2. ACYCLOVIR [Concomitant]
     Active Substance: ACYCLOVIR
  3. CIDOFOVIR [Concomitant]
     Active Substance: CIDOFOVIR
  4. METHYLPREDNISOLONE [Concomitant]
     Active Substance: METHYLPREDNISOLONE

REACTIONS (1)
  - Abdominal pain [Recovered/Resolved]
